FAERS Safety Report 18999962 (Version 1)
Quarter: 2021Q1

REPORT INFORMATION
  Report Type: Spontaneous
  Country: US (occurrence: US)
  Receive Date: 20210311
  Receipt Date: 20210311
  Transmission Date: 20210420
  Serious: Yes (Death, Hospitalization, Other)
  Sender: FDA-Public Use
  Company Number: US-UPSHER-SMITH LABORATORIES, LLC-2021USL00163

PATIENT
  Sex: Male

DRUGS (1)
  1. AMIODARONE HYDROCHLORIDE. [Suspect]
     Active Substance: AMIODARONE HYDROCHLORIDE
     Indication: ATRIAL FIBRILLATION
     Dosage: UNK
     Route: 048
     Dates: start: 201510

REACTIONS (10)
  - Skin ulcer [Unknown]
  - Decreased appetite [Unknown]
  - Heart rate increased [Unknown]
  - Hallucination [Unknown]
  - Unevaluable event [Unknown]
  - Impaired healing [Unknown]
  - Off label use [Unknown]
  - Acute pulmonary oedema [Unknown]
  - Pulmonary fibrosis [Fatal]
  - Respiratory failure [Unknown]

NARRATIVE: CASE EVENT DATE: 201510
